FAERS Safety Report 6446167-5 (Version None)
Quarter: 2009Q4

REPORT INFORMATION
  Report Type: 
  Country: None (occurrence: None)
  Receive Date: 20091119
  Receipt Date: 20091111
  Transmission Date: 20100525
  Serious: Yes (Other)
  Sender: FDA-Public Use
  Company Number: CA-BAYER-200939291NA

PATIENT
  Sex: Male
  Weight: 54 kg

DRUGS (3)
  1. BETASERON [Suspect]
     Indication: SECONDARY PROGRESSIVE MULTIPLE SCLEROSIS
     Dosage: TOTAL DAILY DOSE: 8 MIU
     Route: 058
     Dates: start: 20090919, end: 20091028
  2. BACLOFEN [Concomitant]
     Dates: start: 20080923
  3. CYCLOPIN [Concomitant]
     Dates: start: 20080923

REACTIONS (4)
  - ABASIA [None]
  - ADVERSE EVENT [None]
  - MALAISE [None]
  - PYREXIA [None]
